FAERS Safety Report 6609588-3 (Version None)
Quarter: 2010Q1

REPORT INFORMATION
  Report Type: 
  Country: None (occurrence: None)
  Receive Date: 20100225
  Receipt Date: 20100212
  Transmission Date: 20100710
  Serious: Yes (Other)
  Sender: FDA-Public Use
  Company Number: 2010AL000975

PATIENT
  Age: 21 Year
  Sex: Male

DRUGS (1)
  1. VELAFAXINE HYDROCHLORIDE TABLETS, 37.5MG (ATTLC)) (VENLAFAXINE HYDROCH [Suspect]
     Indication: DEPRESSION
     Dosage: 37.5 MG; UNK; PO
     Route: 048
     Dates: start: 20100118, end: 20100118

REACTIONS (5)
  - AGITATION [None]
  - FEAR [None]
  - MYDRIASIS [None]
  - TACHYCARDIA [None]
  - VISUAL IMPAIRMENT [None]
